FAERS Safety Report 12879018 (Version 1)
Quarter: 2016Q4

REPORT INFORMATION
  Report Type: Report from Study
  Country: US (occurrence: US)
  Receive Date: 20161024
  Receipt Date: 20161024
  Transmission Date: 20170207
  Serious: Yes (Hospitalization, Other)
  Sender: FDA-Public Use
  Company Number: PHHY2016US143519

PATIENT
  Age: 47 Year
  Sex: Male
  Weight: 134 kg

DRUGS (4)
  1. SIMULECT [Suspect]
     Active Substance: BASILIXIMAB
     Indication: IMMUNOSUPPRESSION
  2. MYCOPHENOLATE MOFETIL. [Suspect]
     Active Substance: MYCOPHENOLATE MOFETIL
     Indication: RENAL TRANSPLANT
     Dosage: 1000 MG, BID
     Route: 048
     Dates: start: 20131011
  3. SIMULECT [Suspect]
     Active Substance: BASILIXIMAB
     Indication: RENAL TRANSPLANT
     Dosage: 20 MG, UNK DAY 0-4
     Route: 042
     Dates: start: 20131010, end: 20131014
  4. MYCOPHENOLATE MOFETIL. [Suspect]
     Active Substance: MYCOPHENOLATE MOFETIL
     Indication: IMMUNOSUPPRESSION

REACTIONS (7)
  - Dyspnoea [Unknown]
  - Bradycardia [Unknown]
  - Pneumonia [Recovered/Resolved]
  - Chest discomfort [Unknown]
  - Pyrexia [Recovered/Resolved]
  - Kidney transplant rejection [Recovered/Resolved]
  - Weaning failure [Unknown]

NARRATIVE: CASE EVENT DATE: 2013
